FAERS Safety Report 19169084 (Version 1)
Quarter: 2021Q2

REPORT INFORMATION
  Report Type: Spontaneous
  Country: GB (occurrence: GB)
  Receive Date: 20210422
  Receipt Date: 20210422
  Transmission Date: 20210717
  Serious: Yes (Other)
  Sender: FDA-Public Use
  Company Number: GB-MYLANLABS-2021M1023333

PATIENT
  Age: 22 Year
  Sex: Male
  Weight: 68 kg

DRUGS (1)
  1. ROCURONIUM [Suspect]
     Active Substance: ROCURONIUM BROMIDE
     Indication: INDUCTION AND MAINTENANCE OF ANAESTHESIA
     Dosage: 80 MILLIGRAM
     Route: 042
     Dates: start: 20210410, end: 20210410

REACTIONS (5)
  - Atrial flutter [Unknown]
  - Anaphylactic reaction [Recovered/Resolved]
  - Urticaria [Unknown]
  - Hypotension [Unknown]
  - Bronchospasm [Unknown]

NARRATIVE: CASE EVENT DATE: 20210410
